FAERS Safety Report 19889449 (Version 1)
Quarter: 2021Q3

REPORT INFORMATION
  Report Type: Spontaneous
  Country: BR (occurrence: BR)
  Receive Date: 20210927
  Receipt Date: 20210927
  Transmission Date: 20211014
  Serious: Yes (Other)
  Sender: FDA-Public Use
  Company Number: BR-BAYER-2021A214900

PATIENT
  Age: 51 Year
  Sex: Female

DRUGS (4)
  1. MIRENA [Suspect]
     Active Substance: LEVONORGESTREL
     Indication: HEAVY MENSTRUAL BLEEDING
     Dosage: 20 ?G, CONT
     Route: 015
     Dates: start: 202107, end: 20210920
  2. LOSARTANA POTASSICA [Concomitant]
     Active Substance: LOSARTAN
     Indication: HYPERTENSION
     Dosage: 50 MG, QD
     Route: 048
     Dates: start: 2011
  3. GLIFAGE [Concomitant]
     Active Substance: METFORMIN HYDROCHLORIDE
     Indication: BLOOD GLUCOSE ABNORMAL
     Dosage: 1 DF, QD, AT NIGHT
     Route: 048
     Dates: start: 2011
  4. ATENOLOL. [Concomitant]
     Active Substance: ATENOLOL
     Indication: HYPERTENSION
     Dosage: 25 MG, CONT
     Route: 048
     Dates: start: 2011

REACTIONS (6)
  - Genital haemorrhage [Recovered/Resolved]
  - Appendicitis [None]
  - Device expulsion [None]
  - Abdominal pain [Recovered/Resolved]
  - Hypomenorrhoea [Recovered/Resolved]
  - Pelvic pain [None]

NARRATIVE: CASE EVENT DATE: 202108
